FAERS Safety Report 11046701 (Version 1)
Quarter: 2015Q2

REPORT INFORMATION
  Report Type: Spontaneous
  Country: US (occurrence: US)
  Receive Date: 20150420
  Receipt Date: 20150420
  Transmission Date: 20150821
  Serious: Yes (Other)
  Sender: FDA-Public Use
  Company Number: US-PFIZER INC-2015129413

PATIENT
  Age: 38 Year
  Sex: Female
  Weight: 94 kg

DRUGS (3)
  1. LYRICA [Suspect]
     Active Substance: PREGABALIN
     Dosage: 75 MG, 2X/DAY
     Route: 048
     Dates: start: 201408
  2. LYRICA [Suspect]
     Active Substance: PREGABALIN
     Dosage: 75 MG, 3X/DAY
     Route: 048
     Dates: start: 201501
  3. LYRICA [Suspect]
     Active Substance: PREGABALIN
     Indication: FIBROMYALGIA
     Dosage: 50 MG, 2X/DAY
     Route: 048
     Dates: start: 2014

REACTIONS (7)
  - Arthritis [Unknown]
  - Carpal tunnel syndrome [Unknown]
  - Weight increased [Unknown]
  - Increased appetite [Unknown]
  - Weight decreased [Unknown]
  - Ankylosing spondylitis [Unknown]
  - Pain [Unknown]

NARRATIVE: CASE EVENT DATE: 2014
